FAERS Safety Report 25840408 (Version 1)
Quarter: 2025Q3

REPORT INFORMATION
  Report Type: Other
  Country: AU (occurrence: AU)
  Receive Date: 20250924
  Receipt Date: 20250924
  Transmission Date: 20251021
  Serious: Yes (Hospitalization, Other)
  Sender: ANI
  Company Number: AU-ANIPHARMA-030568

PATIENT
  Age: 24 Year
  Sex: Male

DRUGS (2)
  1. BACLOFEN [Suspect]
     Active Substance: BACLOFEN
     Indication: Alcohol use disorder
     Route: 048
  2. ESCITALOPRAM [Concomitant]
     Active Substance: ESCITALOPRAM OXALATE
     Indication: Alcohol use disorder
     Route: 048

REACTIONS (9)
  - Cardiac arrest [Unknown]
  - Delirium [Unknown]
  - Intentional overdose [Unknown]
  - Bradyarrhythmia [Recovered/Resolved]
  - Agitation [Unknown]
  - Toxicity to various agents [Unknown]
  - Mental status changes [Recovered/Resolved]
  - Withdrawal syndrome [Unknown]
  - Cardiac output decreased [Unknown]
